FAERS Safety Report 7906658-4 (Version None)
Quarter: 2011Q4

REPORT INFORMATION
  Report Type: 
  Country: None (occurrence: None)
  Receive Date: 20111110
  Receipt Date: 20111104
  Transmission Date: 20120403
  Serious: Yes (Other)
  Sender: FDA-Public Use
  Company Number: US-SANOFI-AVENTIS-2011SA072674

PATIENT
  Sex: Male

DRUGS (6)
  1. ASPIRIN [Concomitant]
  2. ZOCOR [Concomitant]
  3. PLAVIX [Suspect]
     Indication: STENT PLACEMENT
     Dates: start: 20101101
  4. PLAVIX [Suspect]
     Dates: start: 20111029
  5. METOPROLOL [Concomitant]
  6. VASOTEC [Concomitant]

REACTIONS (4)
  - THROMBOSIS [None]
  - HAEMATURIA [None]
  - PULMONARY OEDEMA [None]
  - MUSCULOSKELETAL DISCOMFORT [None]
